FAERS Safety Report 20788568 (Version 1)
Quarter: 2022Q2

REPORT INFORMATION
  Report Type: Spontaneous
  Country: MA (occurrence: MA)
  Receive Date: 20220505
  Receipt Date: 20220505
  Transmission Date: 20220721
  Serious: Yes (Life-Threatening, Hospitalization)
  Sender: FDA-Public Use
  Company Number: MA-MYLANLABS-2022M1032445

PATIENT
  Age: 41 Year
  Sex: Male
  Weight: 99.3 kg

DRUGS (9)
  1. DEXAMETHASONE [Suspect]
     Active Substance: DEXAMETHASONE
     Indication: Chronic myeloid leukaemia
     Dosage: UNK, THREE COURSES- AS A PART OF HYPER-CVAD CHEMOTHERAPY PROTOCOL
     Route: 065
  2. DEXAMETHASONE [Suspect]
     Active Substance: DEXAMETHASONE
     Indication: COVID-19
     Dosage: 6 MILLIGRAM, QD, AFTER DIAGNOSIS OF COVID-19
     Route: 065
  3. CYCLOPHOSPHAMIDE [Suspect]
     Active Substance: CYCLOPHOSPHAMIDE
     Indication: Chronic myeloid leukaemia
     Dosage: UNK, THREE COURSES- AS A PART OF HYPER-CVAD CHEMOTHERAPY PROTOCOL
     Route: 065
  4. VINCRISTINE SULFATE [Suspect]
     Active Substance: VINCRISTINE SULFATE
     Indication: Chronic myeloid leukaemia
     Dosage: UNK, THREE COURSES- AS A PART OF HYPER-CVAD CHEMOTHERAPY PROTOCOL
     Route: 065
  5. DOXORUBICIN HYDROCHLORIDE [Suspect]
     Active Substance: DOXORUBICIN HYDROCHLORIDE
     Indication: Chronic myeloid leukaemia
     Dosage: UNK, THREE COURSES- AS A PART OF HYPER-CVAD CHEMOTHERAPY PROTOCOL
     Route: 065
  6. NILOTINIB [Suspect]
     Active Substance: NILOTINIB
     Indication: Chronic myeloid leukaemia
     Dosage: UNK
     Route: 065
  7. NILOTINIB [Suspect]
     Active Substance: NILOTINIB
     Dosage: UNK, AFTER DIAGNOSIS OF COVID-19
     Route: 065
  8. ZINC [Suspect]
     Active Substance: ZINC
     Indication: COVID-19
     Dosage: 45 MILLIGRAM, BID
     Route: 065
  9. VITAMIN C [Suspect]
     Active Substance: ASCORBIC ACID
     Indication: COVID-19
     Dosage: 2 GRAM, QD
     Route: 065

REACTIONS (3)
  - COVID-19 [Recovering/Resolving]
  - Streptococcal infection [Recovering/Resolving]
  - Off label use [Unknown]
